FAERS Safety Report 14498013 (Version 2)
Quarter: 2018Q4

REPORT INFORMATION
  Report Type: Report from Study
  Country: US (occurrence: US)
  Receive Date: 20180207
  Receipt Date: 20181116
  Transmission Date: 20190204
  Serious: Yes (Hospitalization)
  Sender: FDA-Public Use
  Company Number: PHEH2018US004564

PATIENT
  Sex: Male

DRUGS (2)
  1. COSENTYX [Suspect]
     Active Substance: SECUKINUMAB
     Indication: PSORIASIS
  2. COSENTYX [Suspect]
     Active Substance: SECUKINUMAB
     Indication: PSORIATIC ARTHROPATHY
     Dosage: 300 MG, QMO
     Route: 058

REACTIONS (5)
  - Joint injury [Unknown]
  - Drug effect incomplete [Unknown]
  - Cerebral ischaemia [Unknown]
  - Concomitant disease aggravated [Unknown]
  - Mobility decreased [Unknown]
